FAERS Safety Report 16878287 (Version 3)
Quarter: 2023Q2

REPORT INFORMATION
  Report Type: Report from Study
  Country: ES (occurrence: ES)
  Receive Date: 20191002
  Receipt Date: 20230519
  Transmission Date: 20230721
  Serious: Yes (Hospitalization)
  Sender: FDA-Public Use
  Company Number: ES-JNJFOC-20190918752

PATIENT
  Age: 67 Year
  Sex: Male
  Weight: 80 kg

DRUGS (13)
  1. DARATUMUMAB [Suspect]
     Active Substance: DARATUMUMAB
     Indication: Plasma cell myeloma
     Route: 058
     Dates: start: 20190823
  2. DEXAMETHASONE [Suspect]
     Active Substance: DEXAMETHASONE
     Indication: Plasma cell myeloma
     Route: 048
     Dates: start: 20190823
  3. BORTEZOMIB [Concomitant]
     Active Substance: BORTEZOMIB
     Indication: Plasma cell myeloma
     Dosage: ALSO REFLECTED AS 2.44 MG
     Route: 058
     Dates: start: 20190823
  4. LENALIDOMIDE [Concomitant]
     Active Substance: LENALIDOMIDE
     Indication: Plasma cell myeloma
     Route: 048
     Dates: start: 20190823
  5. PANTOPRAZOLE [Concomitant]
     Active Substance: PANTOPRAZOLE
     Indication: Gastrointestinal disorder therapy
     Route: 048
     Dates: start: 20190816
  6. ACYCLOVIR [Concomitant]
     Active Substance: ACYCLOVIR
     Indication: Antiviral prophylaxis
     Route: 048
     Dates: start: 20190823
  7. ZOFRAN [Concomitant]
     Active Substance: ONDANSETRON HYDROCHLORIDE
     Indication: Nausea
     Route: 048
     Dates: start: 20190823
  8. BROMAZEPAM [Concomitant]
     Active Substance: BROMAZEPAM
     Indication: Anxiety
     Route: 048
     Dates: start: 20190816
  9. ZARATOR [ATORVASTATIN] [Concomitant]
     Indication: Dyslipidaemia
     Route: 048
  10. HIBOR [Concomitant]
     Indication: Back pain
     Dosage: 1 APPLICATION
     Route: 058
     Dates: start: 20190816
  11. DOXAZOSIN MESYLATE [Concomitant]
     Active Substance: DOXAZOSIN MESYLATE
     Indication: Back pain
     Route: 048
     Dates: start: 20190816
  12. LORAZEPAM [Concomitant]
     Active Substance: LORAZEPAM
     Indication: Anxiolytic therapy
     Route: 048
     Dates: start: 20190830
  13. ACETAMINOPHEN [Concomitant]
     Active Substance: ACETAMINOPHEN
     Indication: Pain
     Route: 048

REACTIONS (1)
  - Ventricular tachycardia [Recovered/Resolved]

NARRATIVE: CASE EVENT DATE: 20190910
